FAERS Safety Report 6343779-4 (Version None)
Quarter: 2009Q3

REPORT INFORMATION
  Report Type: 
  Country: None (occurrence: None)
  Receive Date: 20090908
  Receipt Date: 20090828
  Transmission Date: 20100115
  Serious: Yes (Hospitalization)
  Sender: FDA-Public Use
  Company Number: B0590486A

PATIENT
  Age: 84 Year
  Sex: Female
  Weight: 58 kg

DRUGS (13)
  1. ROSIGLITAZONE [Suspect]
     Dosage: 8MG PER DAY
     Route: 048
     Dates: start: 20060215, end: 20090309
  2. CO-AMILOZIDE [Concomitant]
  3. TIMOLOL [Concomitant]
  4. LATANOPROST [Concomitant]
  5. CO-CODAMOL [Concomitant]
  6. FELODIPINE [Concomitant]
  7. LEVOTHYROXINE SODIUM [Concomitant]
  8. ASPIRIN [Concomitant]
  9. GLICLAZIDE [Concomitant]
  10. TOLTERODINE TARTRATE [Concomitant]
  11. AMITRIPTYLINE [Concomitant]
  12. SIMVASTATIN [Concomitant]
  13. METFORMIN HCL [Concomitant]

REACTIONS (3)
  - FALL [None]
  - FOREARM FRACTURE [None]
  - RENAL IMPAIRMENT [None]
